FAERS Safety Report 24836512 (Version 2)
Quarter: 2025Q3

REPORT INFORMATION
  Report Type: Spontaneous
  Country: EU (occurrence: EU)
  Receive Date: 20250113
  Receipt Date: 20250809
  Transmission Date: 20251021
  Serious: Yes (Hospitalization)
  Sender: ALEXION PHARMACEUTICALS
  Company Number: EU-AstraZeneca-CH-00779756AM

PATIENT
  Sex: Female
  Weight: 59 kg

DRUGS (12)
  1. DAPAGLIFLOZIN [Suspect]
     Active Substance: DAPAGLIFLOZIN
     Indication: Diabetes mellitus
  2. DAPAGLIFLOZIN [Suspect]
     Active Substance: DAPAGLIFLOZIN
     Dosage: 10 MILLIGRAM, QD
     Dates: start: 20250106
  3. GLICLAZIDE [Concomitant]
     Active Substance: GLICLAZIDE
  4. JANUVIA [Concomitant]
     Active Substance: SITAGLIPTIN PHOSPHATE
  5. PANTOPRAZOLE SODIUM [Concomitant]
     Active Substance: PANTOPRAZOLE SODIUM
  6. POTASSIUM CHLORIDE [Concomitant]
     Active Substance: POTASSIUM CHLORIDE
  7. ELIQUIS [Concomitant]
     Active Substance: APIXABAN
  8. LERCANIDIPINE [Concomitant]
     Active Substance: LERCANIDIPINE
  9. SOTALOL [Concomitant]
     Active Substance: SOTALOL
  10. IRBESARTAN [Concomitant]
     Active Substance: IRBESARTAN
  11. ACETYLLEUCINE [Concomitant]
     Active Substance: ACETYLLEUCINE
  12. BENSERAZIDE HYDROCHLORIDE\LEVODOPA [Concomitant]
     Active Substance: BENSERAZIDE HYDROCHLORIDE\LEVODOPA

REACTIONS (2)
  - Fall [Unknown]
  - Off label use [Recovered/Resolved]
